FAERS Safety Report 8756832 (Version 4)
Quarter: 2014Q2

REPORT INFORMATION
  Report Type: Spontaneous
  Country: BR (occurrence: BR)
  Receive Date: 20120828
  Receipt Date: 20140403
  Transmission Date: 20141212
  Serious: Yes (Hospitalization, Other)
  Sender: FDA-Public Use
  Company Number: BR-SANOFI-AVENTIS-2012SA059364

PATIENT
  Age: 40 Year
  Sex: Female
  Weight: 83 kg

DRUGS (17)
  1. LANTUS SOLOSTAR [Suspect]
     Indication: TYPE 2 DIABETES MELLITUS
     Route: 058
     Dates: start: 200902
  2. APIDRA SOLOSTAR [Suspect]
     Indication: TYPE 2 DIABETES MELLITUS
     Route: 058
     Dates: start: 2009
  3. SOLOSTAR [Concomitant]
     Indication: DEVICE THERAPY
     Dates: start: 201202
  4. SOLOSTAR [Concomitant]
     Indication: DEVICE THERAPY
     Dates: start: 201205
  5. HIGROTON [Concomitant]
     Indication: URINE OUTPUT
     Route: 048
     Dates: start: 201207
  6. AAS [Concomitant]
     Indication: ANTIPLATELET THERAPY
     Route: 048
     Dates: start: 201207
  7. HYDRALAZINE [Concomitant]
     Indication: BLOOD PRESSURE
     Route: 048
     Dates: start: 201207
  8. CARVEDILOL [Concomitant]
     Indication: HYPERTENSION
     Dosage: STRENGTH: 6.25 MG
     Route: 048
     Dates: start: 201207
  9. FUROSEMIDE [Concomitant]
     Indication: RENAL DISORDER
     Route: 048
     Dates: start: 201207
  10. ENALAPRIL MALEATE [Concomitant]
     Indication: BLOOD PRESSURE
     Route: 048
     Dates: start: 201207
  11. OMEPRAZOLE [Concomitant]
     Indication: GASTRIC DISORDER
     Dosage: STRENGTH: 20 MG
     Route: 048
     Dates: start: 201203
  12. SIMVASTATIN [Concomitant]
     Indication: BLOOD CHOLESTEROL
     Route: 048
     Dates: start: 201207
  13. DIMETICONE [Concomitant]
     Indication: CHEST PAIN
     Dosage: STRENGTH: 40 MG
     Route: 048
  14. BROMAZEPAM [Concomitant]
     Indication: HYPERTENSION
     Dosage: STRENGTH: 3 MG
     Route: 048
  15. NOVANLO [Concomitant]
     Indication: HYPERTENSION
     Dosage: STRENGTH: 2.5 MG
     Route: 048
  16. VALSARTAN [Concomitant]
     Indication: HYPERTENSION
     Dosage: STRENGTH: 320 MG
     Route: 048
  17. PROPRANOLOL HYDROCHLORIDE [Concomitant]
     Indication: HYPERTENSION
     Dosage: STRENGTH: 150 MG
     Route: 048

REACTIONS (14)
  - Infarction [Recovered/Resolved]
  - Fluid retention [Recovered/Resolved]
  - Cough [Recovering/Resolving]
  - Dyspnoea [Recovering/Resolving]
  - Fluid retention [Not Recovered/Not Resolved]
  - Abdominal distension [Recovering/Resolving]
  - Vomiting [Recovering/Resolving]
  - Diabetic retinopathy [Not Recovered/Not Resolved]
  - Visual impairment [Not Recovered/Not Resolved]
  - Blindness [Not Recovered/Not Resolved]
  - Eye haemorrhage [Unknown]
  - Hyperglycaemia [Recovering/Resolving]
  - Renal impairment [Unknown]
  - Underdose [Unknown]
